FAERS Safety Report 4823986-X (Version None)
Quarter: 2005Q4

REPORT INFORMATION
  Report Type: 
  Country: None (occurrence: None)
  Receive Date: 20051109
  Receipt Date: 20051031
  Transmission Date: 20060501
  Serious: Yes (Hospitalization)
  Sender: FDA-Public Use
  Company Number: US-JNJFOC-20051100484

PATIENT
  Sex: Female
  Weight: 74.84 kg

DRUGS (17)
  1. REMICADE [Suspect]
     Route: 042
  2. REMICADE [Suspect]
     Indication: CROHN'S DISEASE
     Route: 042
  3. PENTASA [Concomitant]
     Indication: CROHN'S DISEASE
  4. SYNTHROID [Concomitant]
  5. FERROUS [Concomitant]
  6. PROTONIX [Concomitant]
     Indication: CROHN'S DISEASE
  7. PROTONIX [Concomitant]
     Indication: GASTROINTESTINAL DISORDER
  8. EFFEXOR [Concomitant]
     Indication: DEPRESSION
  9. MEGESTROL ACETATE [Concomitant]
  10. WELLBUTRIN [Concomitant]
     Indication: DEPRESSION
  11. XANAX [Concomitant]
     Indication: ANXIETY
  12. PERCOCET [Concomitant]
  13. PERCOCET [Concomitant]
     Indication: PAIN
  14. LOMOTIL [Concomitant]
  15. BENTYL [Concomitant]
  16. RESTORIL [Concomitant]
     Indication: SLEEP DISORDER THERAPY
  17. NEURONTIN [Concomitant]

REACTIONS (3)
  - DYSPLASIA [None]
  - THYROID GLAND CANCER [None]
  - UTERINE MASS [None]
